FAERS Safety Report 5623940-4 (Version None)
Quarter: 2008Q1

REPORT INFORMATION
  Report Type: 
  Country: None (occurrence: None)
  Receive Date: 20080207
  Receipt Date: 20080131
  Transmission Date: 20080703
  Serious: Yes (Hospitalization)
  Sender: FDA-Public Use
  Company Number: 2008-00589

PATIENT
  Age: 63 Year
  Sex: Male

DRUGS (4)
  1. METHYLPREDNISOLONE 4MG TAB [Suspect]
     Indication: IMMUNE ENHANCEMENT THERAPY
     Dosage: 64 MG, DAILY X 1 MONTH, ORAL
     Route: 048
  2. PREDNISOLONE [Suspect]
     Indication: IMMUNE ENHANCEMENT THERAPY
  3. METHOTREXATE [Suspect]
     Indication: IMMUNE ENHANCEMENT THERAPY
  4. IMMUNOGLOBULINS(IMMUNOGLOBULINS) [Suspect]
     Indication: IMMUNE ENHANCEMENT THERAPY
     Dosage: INTRAVENOUS
     Route: 042

REACTIONS (4)
  - AUTOIMMUNE THYROIDITIS [None]
  - CONDITION AGGRAVATED [None]
  - DRUG INEFFECTIVE [None]
  - ENCEPHALOPATHY [None]
